FAERS Safety Report 17639278 (Version 1)
Quarter: 2020Q2

REPORT INFORMATION
  Report Type: Spontaneous
  Country: US (occurrence: US)
  Receive Date: 20200407
  Receipt Date: 20200407
  Transmission Date: 20200713
  Serious: No
  Sender: FDA-Public Use
  Company Number: US-CURIUM-200200128

PATIENT
  Age: 80 Year
  Sex: Female

DRUGS (1)
  1. OCTREOSCAN [Suspect]
     Active Substance: INDIUM IN-111 CHLORIDE\INDIUM IN-111 PENTETREOTIDE
     Indication: RADIOISOTOPE SCAN
     Route: 042
     Dates: start: 20020625, end: 20020625

REACTIONS (6)
  - Skin exfoliation [Recovering/Resolving]
  - Oral mucosal exfoliation [Recovering/Resolving]
  - Taste disorder [Recovering/Resolving]
  - Oral discomfort [Recovering/Resolving]
  - Oral fungal infection [Recovering/Resolving]
  - Mucosal inflammation [Recovering/Resolving]
